FAERS Safety Report 5758477-5 (Version None)
Quarter: 2008Q2

REPORT INFORMATION
  Report Type: 
  Country: None (occurrence: None)
  Receive Date: 20080604
  Receipt Date: 20080514
  Transmission Date: 20081010
  Serious: No
  Sender: FDA-Public Use
  Company Number: US-BAYER-200822868NA

PATIENT
  Age: 45 Year
  Sex: Female
  Weight: 91 kg

DRUGS (3)
  1. MAGNEVIST-100 PHARMACY BULK PACKAGE [Suspect]
     Indication: NUCLEAR MAGNETIC RESONANCE IMAGING BRAIN
     Dosage: TOTAL DAILY DOSE: 12 ML  UNIT DOSE: 100 ML
     Route: 042
     Dates: start: 20080513, end: 20080513
  2. SYNTHROID [Concomitant]
  3. VICODIN [Concomitant]

REACTIONS (1)
  - PRURITUS GENERALISED [None]
